FAERS Safety Report 4388545-4 (Version None)
Quarter: 2004Q2

REPORT INFORMATION
  Report Type: 
  Country: None (occurrence: None)
  Receive Date: 20040624
  Receipt Date: 20040611
  Transmission Date: 20050107
  Serious: Yes (Death, Hospitalization)
  Sender: FDA-Public Use
  Company Number: WSDF_00413

PATIENT
  Age: 71 Year
  Sex: Male
  Weight: 72 kg

DRUGS (2)
  1. WINRHO SDF [Suspect]
     Indication: THROMBOCYTOPENIA
     Dosage: 75 MCG/KG ONCE IV
     Route: 042
     Dates: start: 20040607, end: 20040607
  2. WINRHO SDF [Suspect]
     Indication: THROMBOCYTOPENIA
     Dates: start: 20040607, end: 20040607

REACTIONS (8)
  - BACK PAIN [None]
  - BLOOD CREATININE INCREASED [None]
  - CARDIO-RESPIRATORY ARREST [None]
  - HAEMATURIA [None]
  - HAEMOGLOBIN DECREASED [None]
  - HEADACHE [None]
  - PULSE ABSENT [None]
  - VENTRICULAR TACHYCARDIA [None]
